FAERS Safety Report 18461336 (Version 2)
Quarter: 2020Q4

REPORT INFORMATION
  Report Type: Report from Study
  Country: US (occurrence: US)
  Receive Date: 20201104
  Receipt Date: 20201106
  Transmission Date: 20210114
  Serious: Yes (Other)
  Sender: FDA-Public Use
  Company Number: US-PFIZER INC-2020420671

PATIENT
  Age: 22 Year
  Sex: Male

DRUGS (2)
  1. KETAMINE HCL [Suspect]
     Active Substance: KETAMINE HYDROCHLORIDE
     Indication: AGITATION
  2. KETAMINE HCL [Suspect]
     Active Substance: KETAMINE HYDROCHLORIDE
     Indication: SEDATION
     Dosage: 400 MG
     Route: 030

REACTIONS (1)
  - Salivary hypersecretion [Recovered/Resolved]
